FAERS Safety Report 10228484 (Version 3)
Quarter: 2014Q2

REPORT INFORMATION
  Report Type: Report from Study
  Country: US (occurrence: US)
  Receive Date: 20140610
  Receipt Date: 20140620
  Transmission Date: 20141212
  Serious: Yes (Hospitalization)
  Sender: FDA-Public Use
  Company Number: US-ACTELION-A-US2012-70754

PATIENT
  Age: 51 Year
  Sex: Male

DRUGS (2)
  1. VELETRI [Suspect]
     Indication: PULMONARY ARTERIAL HYPERTENSION
     Dosage: 13 NG/KG, PER MIN
     Route: 042
     Dates: start: 20120725
  2. ADCIRCA [Concomitant]

REACTIONS (8)
  - Synovial cyst [Recovering/Resolving]
  - Pain in extremity [Recovering/Resolving]
  - Erythema [Recovering/Resolving]
  - Flushing [Unknown]
  - Headache [Unknown]
  - Vomiting [Unknown]
  - Muscular weakness [Unknown]
  - Burning sensation [Unknown]
